FAERS Safety Report 10257259 (Version 2)
Quarter: 2015Q2

REPORT INFORMATION
  Report Type: Spontaneous
  Country: US (occurrence: None)
  Receive Date: 20140620
  Receipt Date: 20150416
  Transmission Date: 20150821
  Serious: Yes (Hospitalization, Other)
  Sender: FDA-Public Use
  Company Number: 1713747-2014-99989

PATIENT
  Age: 61 Year
  Sex: Male

DRUGS (14)
  1. REQUIP [Concomitant]
     Active Substance: ROPINIROLE HYDROCHLORIDE
  2. COLACE [Concomitant]
     Active Substance: DOCUSATE SODIUM
  3. LIPITOR [Concomitant]
     Active Substance: ATORVASTATIN CALCIUM
  4. PLENDIL [Concomitant]
     Active Substance: FELODIPINE
  5. LOPRESSOR [Concomitant]
     Active Substance: METOPROLOL TARTRATE
  6. PROCRIT [Concomitant]
     Active Substance: ERYTHROPOIETIN
  7. ASPIRIN. [Concomitant]
     Active Substance: ASPIRIN
  8. ROCALTROL [Concomitant]
     Active Substance: CALCITRIOL
  9. AMBIEN [Concomitant]
     Active Substance: ZOLPIDEM TARTRATE
  10. DELFLEX NEUTRAL PH WITH ATTACHED STAY-SAFE EXCHANGE SET [Suspect]
     Active Substance: CALCIUM CHLORIDE\DEXTROSE MONOHYDRATE\MAGNESIUM CHLORIDE\SODIUM CHLORIDE\SODIUM LACTATE
     Route: 033
  11. PLAVIX [Concomitant]
     Active Substance: CLOPIDOGREL BISULFATE
  12. FOLIC ACID. [Concomitant]
     Active Substance: FOLIC ACID
  13. PHOSLO [Concomitant]
     Active Substance: CALCIUM ACETATE
  14. ALLOPURINOL. [Concomitant]
     Active Substance: ALLOPURINOL

REACTIONS (4)
  - Dizziness [None]
  - Staphylococcal infection [None]
  - Peritoneal cloudy effluent [None]
  - Peritonitis [None]

NARRATIVE: CASE EVENT DATE: 20140505
